FAERS Safety Report 6210617-X (Version None)
Quarter: 2009Q2

REPORT INFORMATION
  Report Type: 
  Country: None (occurrence: None)
  Receive Date: 20090529
  Receipt Date: 20090529
  Transmission Date: 20091009
  Serious: No
  Sender: FDA-Public Use
  Company Number: None

PATIENT
  Age: 50 Year
  Sex: Female
  Weight: 90.7194 kg

DRUGS (2)
  1. AMOXICILLIN [Suspect]
     Indication: ENDODONTIC PROCEDURE
     Dosage: 1 CAPSULE EVERY 6 HOURS PO
     Route: 048
     Dates: start: 20090519, end: 20090524
  2. AMOXICILLIN [Suspect]
     Indication: TOOTH INFECTION
     Dosage: 1 CAPSULE EVERY 6 HOURS PO
     Route: 048
     Dates: start: 20090519, end: 20090524

REACTIONS (3)
  - DEAFNESS [None]
  - EAR DISCOMFORT [None]
  - NO THERAPEUTIC RESPONSE [None]
